FAERS Safety Report 19239691 (Version 4)
Quarter: 2021Q3

REPORT INFORMATION
  Report Type: Report from Study
  Country: US (occurrence: US)
  Receive Date: 20210510
  Receipt Date: 20210801
  Transmission Date: 20211014
  Serious: No
  Sender: FDA-Public Use
  Company Number: NVSC2021US098096

PATIENT
  Sex: Male

DRUGS (2)
  1. ENTRESTO [Suspect]
     Active Substance: SACUBITRIL\VALSARTAN
     Route: 065
  2. ENTRESTO [Suspect]
     Active Substance: SACUBITRIL\VALSARTAN
     Indication: CARDIAC FAILURE CHRONIC
     Dosage: UNK
     Route: 065

REACTIONS (9)
  - Genital swelling [Unknown]
  - Dust allergy [Unknown]
  - Weight increased [Unknown]
  - Arthralgia [Unknown]
  - Neuralgia [Unknown]
  - Throat clearing [Unknown]
  - Energy increased [Unknown]
  - Peripheral swelling [Unknown]
  - Ejection fraction abnormal [Unknown]
